FAERS Safety Report 14753074 (Version 1)
Quarter: 2018Q2

REPORT INFORMATION
  Report Type: Spontaneous
  Country: US (occurrence: US)
  Receive Date: 20180412
  Receipt Date: 20180412
  Transmission Date: 20180711
  Serious: No
  Sender: FDA-Public Use
  Company Number: US-MYLANLABS-2018M1018631

PATIENT
  Age: 44 Year
  Sex: Female
  Weight: 98 kg

DRUGS (2)
  1. FENTANYL TRANSDERMAL SYSTEM [Suspect]
     Active Substance: FENTANYL
     Indication: FIBROMYALGIA
     Dosage: 50 MICROGRAMS, Q3W
     Route: 062
  2. FENTANYL TRANSDERMAL SYSTEM [Suspect]
     Active Substance: FENTANYL
     Indication: PAIN

REACTIONS (7)
  - Application site dryness [Not Recovered/Not Resolved]
  - Hyperhidrosis [Unknown]
  - Product adhesion issue [Unknown]
  - Product quality issue [Unknown]
  - Blood glucose decreased [Recovered/Resolved]
  - Anxiety [Recovered/Resolved]
  - Application site pruritus [Not Recovered/Not Resolved]

NARRATIVE: CASE EVENT DATE: 20180313
